FAERS Safety Report 24083167 (Version 2)
Quarter: 2024Q3

REPORT INFORMATION
  Report Type: Spontaneous
  Country: US (occurrence: US)
  Receive Date: 20240712
  Receipt Date: 20240724
  Transmission Date: 20241017
  Serious: No
  Sender: ABBVIE
  Company Number: US-ABBVIE-5835008

PATIENT
  Sex: Male

DRUGS (2)
  1. CREON [Suspect]
     Active Substance: PANCRELIPASE AMYLASE\PANCRELIPASE LIPASE\PANCRELIPASE PROTEASE
     Indication: Pancreatic failure
     Dosage: 5 CAPS EACH MEAL; 4 CAPS EACH SNACKS?FORM STRENGTH: 24000 IU
     Route: 048
     Dates: start: 2006
  2. CREON [Suspect]
     Active Substance: PANCRELIPASE AMYLASE\PANCRELIPASE LIPASE\PANCRELIPASE PROTEASE
     Indication: Pancreatic failure
     Dosage: TAKING MEAL 3 TIMES IN A DAY AND 3 TO 4 SNACKS IN A DAY
     Route: 048

REACTIONS (6)
  - Abdominal discomfort [Recovered/Resolved]
  - Intentional dose omission [Unknown]
  - Constipation [Recovered/Resolved]
  - Abdominal pain [Recovered/Resolved]
  - Constipation [Recovered/Resolved]
  - Product size issue [Unknown]

NARRATIVE: CASE EVENT DATE: 20240101
